FAERS Safety Report 5335517-9 (Version None)
Quarter: 2007Q2

REPORT INFORMATION
  Report Type: 
  Country: None (occurrence: None)
  Receive Date: 20070525
  Receipt Date: 20070518
  Transmission Date: 20071010
  Serious: Yes (Death, Other)
  Sender: FDA-Public Use
  Company Number: US-PFIZER INC-2007040507

PATIENT

DRUGS (1)
  1. BEXTRA [Suspect]
     Dates: start: 20030101, end: 20030201

REACTIONS (2)
  - CARDIAC ARREST [None]
  - MYOCARDIAL INFARCTION [None]
